FAERS Safety Report 12400224 (Version 1)
Quarter: 2016Q2

REPORT INFORMATION
  Report Type: Spontaneous
  Country: US (occurrence: None)
  Receive Date: 20160524
  Receipt Date: 20160524
  Transmission Date: 20160815
  Serious: Yes (Disabling)
  Sender: FDA-Public Use
  Company Number: None

PATIENT
  Sex: Female
  Weight: 89 kg

DRUGS (1)
  1. CIPROFLOXACIN 500 MG, 500 MG [Suspect]
     Active Substance: CIPROFLOXACIN
     Indication: DIVERTICULITIS
     Dosage: 20 TABLESTS TWICA A DAY
     Route: 048

REACTIONS (5)
  - Muscle rupture [None]
  - Fatigue [None]
  - Rotator cuff syndrome [None]
  - Heart rate irregular [None]
  - Bedridden [None]
